FAERS Safety Report 18057302 (Version 1)
Quarter: 2020Q3

REPORT INFORMATION
  Report Type: Spontaneous
  Country: CN (occurrence: CN)
  Receive Date: 20200723
  Receipt Date: 20200723
  Transmission Date: 20201103
  Serious: Yes (Other)
  Sender: FDA-Public Use
  Company Number: CN-ROCHE-2645574

PATIENT
  Age: 41 Year
  Sex: Female

DRUGS (10)
  1. REGORAFENIB. [Concomitant]
     Active Substance: REGORAFENIB
     Indication: RECTAL ADENOCARCINOMA
     Dosage: 80MG PER DAY ON THE FIRST WEEK, 120MG PER DAY ON THE SECOND WEEK, 160MG PER DAY ON THE THIRD WEEK, M
     Route: 048
  2. IRINOTECAN [Concomitant]
     Active Substance: IRINOTECAN
     Indication: RECTAL ADENOCARCINOMA
     Dates: start: 20141118, end: 20150210
  3. CALCIUM FOLINATE [Concomitant]
     Active Substance: LEUCOVORIN CALCIUM
     Dates: start: 20191120, end: 20200110
  4. XELODA [Suspect]
     Active Substance: CAPECITABINE
     Indication: RECTAL ADENOCARCINOMA
     Route: 048
     Dates: start: 20160326, end: 20160928
  5. AVASTIN [Suspect]
     Active Substance: BEVACIZUMAB
     Indication: RECTAL ADENOCARCINOMA
     Route: 065
     Dates: start: 20141118, end: 20150210
  6. OXALIPLATIN. [Concomitant]
     Active Substance: OXALIPLATIN
     Indication: RECTAL ADENOCARCINOMA
     Dates: start: 20160326, end: 20160928
  7. AVASTIN [Suspect]
     Active Substance: BEVACIZUMAB
     Route: 065
     Dates: start: 20191120, end: 20200110
  8. CALCIUM FOLINATE [Concomitant]
     Active Substance: LEUCOVORIN CALCIUM
     Indication: RECTAL ADENOCARCINOMA
     Dates: start: 20141118, end: 20150210
  9. 5?FLUOROURACIL [Concomitant]
     Active Substance: FLUOROURACIL
     Indication: RECTAL ADENOCARCINOMA
     Dates: start: 20191120, end: 20200110
  10. OXALIPLATIN. [Concomitant]
     Active Substance: OXALIPLATIN
     Dates: start: 20191120, end: 20200110

REACTIONS (4)
  - Neurotoxicity [Unknown]
  - Myelosuppression [Unknown]
  - Gastrointestinal disorder [Unknown]
  - Radiation proctitis [Unknown]
